FAERS Safety Report 7340082-0 (Version None)
Quarter: 2011Q1

REPORT INFORMATION
  Report Type: 
  Country: None (occurrence: None)
  Receive Date: 20110309
  Receipt Date: 20110303
  Transmission Date: 20110831
  Serious: Yes (Death, Other)
  Sender: FDA-Public Use
  Company Number: PHHY2010JP86448

PATIENT
  Sex: Female

DRUGS (5)
  1. CGP 42446 [Suspect]
     Indication: METASTASES TO BONE
     Dosage: 4MG (SINGLE DOSE)
     Route: 041
     Dates: start: 20070622, end: 20070622
  2. GASTER D [Concomitant]
     Dosage: UNK
     Route: 048
     Dates: start: 20070612, end: 20070626
  3. BETAMETHASONE [Concomitant]
     Dosage: 4 MG, UNK
     Dates: start: 20070612, end: 20070626
  4. GLYCEOL [Concomitant]
     Dosage: 200 ML, UNK
     Dates: start: 20070612, end: 20070626
  5. LOXONIN [Concomitant]
     Dosage: 180 MG, UNK
     Dates: start: 20070612, end: 20070626

REACTIONS (2)
  - NEOPLASM MALIGNANT [None]
  - ALTERED STATE OF CONSCIOUSNESS [None]
